FAERS Safety Report 6757754-9 (Version None)
Quarter: 2010Q2

REPORT INFORMATION
  Report Type: 
  Country: None (occurrence: None)
  Receive Date: 20100524
  Receipt Date: 20100218
  Transmission Date: 20101027
  Serious: No
  Sender: FDA-Public Use
  Company Number: 005804

PATIENT
  Sex: Female
  Weight: 78 kg

DRUGS (16)
  1. CIMZIA [Suspect]
     Indication: RHEUMATOID ARTHRITIS
     Dosage: (200 MG EVERU 2 WEEKS SUBCUTANEOUS)
     Route: 058
     Dates: start: 20090101
  2. AUGMENTIN '125' [Suspect]
     Indication: KIDNEY INFECTION
     Dosage: (875 MG TWICE DAILY ORAL) ; (500 MG TWICE DAILY ORAL)
     Route: 048
     Dates: start: 20100115, end: 20100101
  3. AUGMENTIN '125' [Suspect]
     Indication: KIDNEY INFECTION
     Dosage: (875 MG TWICE DAILY ORAL) ; (500 MG TWICE DAILY ORAL)
     Route: 048
     Dates: start: 20100101, end: 20100123
  4. METHOTREXATE [Concomitant]
  5. AMBIEN CR [Concomitant]
  6. LYRICA [Concomitant]
  7. LIPITOR [Concomitant]
  8. FOLIC ACID [Concomitant]
  9. CARDIZEM [Concomitant]
  10. SINGULAIR [Concomitant]
  11. PROPOXYPHENE [Concomitant]
  12. HYDROCODONE [Concomitant]
  13. AMITRIPTYLINE [Concomitant]
  14. LEVOTHYROXINE SODIUM [Concomitant]
  15. MACROGID [Concomitant]
  16. LEVAQUIN [Concomitant]

REACTIONS (8)
  - ARTHRALGIA [None]
  - ASTHENIA [None]
  - DIARRHOEA [None]
  - HALLUCINATIONS, MIXED [None]
  - INJECTION SITE PAIN [None]
  - KIDNEY INFECTION [None]
  - PRODUCT QUALITY ISSUE [None]
  - THYROID FUNCTION TEST ABNORMAL [None]
